FAERS Safety Report 4854767-9 (Version None)
Quarter: 2005Q4

REPORT INFORMATION
  Report Type: 
  Country: None (occurrence: None)
  Receive Date: 20051215
  Receipt Date: 20051213
  Transmission Date: 20060501
  Serious: Yes (Other)
  Sender: FDA-Public Use
  Company Number: AU-GLAXOSMITHKLINE-B0403695A

PATIENT
  Sex: Female

DRUGS (2)
  1. ZYBAN [Suspect]
     Indication: DRUG USE FOR UNKNOWN INDICATION
     Route: 048
  2. CONTRACEPTIVE PILL [Concomitant]

REACTIONS (7)
  - HALLUCINATION [None]
  - INSOMNIA [None]
  - MALAISE [None]
  - PARAESTHESIA [None]
  - PRURITUS [None]
  - TINNITUS [None]
  - VISION BLURRED [None]
